FAERS Safety Report 4560740-0 (Version None)
Quarter: 2005Q1

REPORT INFORMATION
  Report Type: 
  Country: None (occurrence: None)
  Receive Date: 20050121
  Receipt Date: 20050112
  Transmission Date: 20050727
  Serious: Yes (Other)
  Sender: FDA-Public Use
  Company Number: 2005-01-1082

PATIENT
  Age: 76 Year
  Sex: Female

DRUGS (7)
  1. GARAMYCIN [Suspect]
     Dosage: 150 MG TID INTRAMUSCULAR
     Route: 030
  2. . [Concomitant]
  3. ACEBUTOLOL HCL [Concomitant]
  4. ADALAT [Concomitant]
  5. LOZIDE TABLETS [Concomitant]
  6. NAPROSYN [Concomitant]
  7. ROCEPHIN [Concomitant]

REACTIONS (7)
  - BALANCE DISORDER [None]
  - BLOOD CREATININE INCREASED [None]
  - MEDICATION ERROR [None]
  - MUSCLE SPASMS [None]
  - OTOTOXICITY [None]
  - PULMONARY OEDEMA [None]
  - VERTIGO [None]
